FAERS Safety Report 22098128 (Version 1)
Quarter: 2023Q1

REPORT INFORMATION
  Report Type: Spontaneous
  Country: JP (occurrence: None)
  Receive Date: 20230315
  Receipt Date: 20230315
  Transmission Date: 20230417
  Serious: Yes (Other)
  Sender: FDA-Public Use
  Company Number: 2023A058298

PATIENT

DRUGS (1)
  1. IMFINZI [Suspect]
     Active Substance: DURVALUMAB
     Indication: Non-small cell lung cancer
     Route: 041

REACTIONS (4)
  - Dermatitis exfoliative generalised [Unknown]
  - Skin exfoliation [Unknown]
  - Dermatitis psoriasiform [Unknown]
  - Sleep disorder due to general medical condition, insomnia type [Unknown]
